FAERS Safety Report 20120870 (Version 2)
Quarter: 2022Q1

REPORT INFORMATION
  Report Type: Spontaneous
  Country: ES (occurrence: ES)
  Receive Date: 20211127
  Receipt Date: 20220323
  Transmission Date: 20220423
  Serious: Yes (Life-Threatening, Hospitalization, Other)
  Sender: FDA-Public Use
  Company Number: ES-MLMSERVICE-20211115-3215089-1

PATIENT
  Age: 78 Year
  Sex: Male

DRUGS (3)
  1. CARBOPLATIN [Suspect]
     Active Substance: CARBOPLATIN
     Indication: Squamous cell carcinoma of head and neck
     Dosage: WEEKLY CARBOPLATIN (AUC2);6 WEEKLY ADMINISTRATIONS OF PACLITAXEL AND CARBOPLATIN
     Dates: start: 202011, end: 202012
  2. TAXOL [Suspect]
     Active Substance: PACLITAXEL
     Indication: Squamous cell carcinoma of head and neck
     Dosage: 80 MG/M2; 6 WEEKLY ADMINISTRATIONS OF PACLITAXEL AND CARBOPLATIN
     Dates: start: 202011, end: 202012
  3. PEMBROLIZUMAB [Suspect]
     Active Substance: PEMBROLIZUMAB
     Indication: Squamous cell carcinoma of head and neck
     Dosage: 200 MG IV EVERY 3 WEEKS
     Route: 042
     Dates: start: 202011, end: 202012

REACTIONS (3)
  - Neutropenia [Unknown]
  - Autoimmune hepatitis [Recovering/Resolving]
  - Off label use [Unknown]

NARRATIVE: CASE EVENT DATE: 20200101
